FAERS Safety Report 9287205 (Version 2)
Quarter: 2013Q2

REPORT INFORMATION
  Report Type: Spontaneous
  Country: FR (occurrence: FR)
  Receive Date: 20130513
  Receipt Date: 20130521
  Transmission Date: 20140414
  Serious: Yes (Other)
  Sender: FDA-Public Use
  Company Number: FR-TEVA-403449ISR

PATIENT
  Sex: Male

DRUGS (4)
  1. SERTRALINE TEVA 50 MG, G?LULE [Suspect]
     Indication: OBSESSIVE-COMPULSIVE DISORDER
     Dosage: 150 MILLIGRAM DAILY;
     Route: 048
  2. TERCIAN [Concomitant]
     Indication: OBSESSIVE-COMPULSIVE DISORDER
  3. ANXIOLYTIC NOS [Concomitant]
     Indication: SLEEP DISORDER THERAPY
  4. NOZINAN [Concomitant]

REACTIONS (3)
  - Suicidal ideation [Unknown]
  - Homicidal ideation [Unknown]
  - Malaise [Unknown]
